FAERS Safety Report 14832603 (Version 2)
Quarter: 2019Q1

REPORT INFORMATION
  Report Type: Spontaneous
  Country: US (occurrence: US)
  Receive Date: 20180501
  Receipt Date: 20190307
  Transmission Date: 20190417
  Serious: Yes (Other)
  Sender: FDA-Public Use
  Company Number: US-GLAXOSMITHKLINE-US2018GSK068172

PATIENT
  Sex: Male

DRUGS (3)
  1. PREVACID [Suspect]
     Active Substance: LANSOPRAZOLE
     Indication: PRODUCT USED FOR UNKNOWN INDICATION
     Dosage: UNK
     Route: 065
  2. PANTOPRAZOLE [Suspect]
     Active Substance: PANTOPRAZOLE
     Indication: GASTROOESOPHAGEAL REFLUX DISEASE
     Dosage: 40 MG, QD
     Route: 065
  3. PREVACID [Suspect]
     Active Substance: LANSOPRAZOLE
     Indication: PRODUCT USED FOR UNKNOWN INDICATION
     Dosage: UNK
     Route: 065

REACTIONS (17)
  - Dialysis [Unknown]
  - Azotaemia [Unknown]
  - Chronic kidney disease [Unknown]
  - Renal atrophy [Unknown]
  - Acute kidney injury [Unknown]
  - Nephrolithiasis [Unknown]
  - Pyelonephritis [Unknown]
  - Haematuria [Unknown]
  - Glomerulonephritis [Unknown]
  - Nephropathy [Unknown]
  - Obstructive nephropathy [Unknown]
  - End stage renal disease [Unknown]
  - Renal failure [Unknown]
  - Hydronephrosis [Unknown]
  - Nephrogenic anaemia [Unknown]
  - Proteinuria [Unknown]
  - Renal cyst [Unknown]
